FAERS Safety Report 7502305 (Version 2)
Quarter: 2016Q3

REPORT INFORMATION
  Report Type: Spontaneous
  Country: US (occurrence: US)
  Receive Date: 20100727
  Receipt Date: 20160802
  Transmission Date: 20161109
  Serious: Yes (Other)
  Sender: FDA-Public Use
  Company Number: US-JNJFOC-20091203637

PATIENT
  Sex: Male
  Weight: 108.86 kg

DRUGS (9)
  1. DURAGESIC [Suspect]
     Active Substance: FENTANYL
     Indication: CHEST PAIN
     Route: 062
     Dates: start: 200910
  2. PAROXETINE. [Concomitant]
     Active Substance: PAROXETINE
     Route: 048
  3. SIMVASTATIN. [Concomitant]
     Active Substance: SIMVASTATIN
     Route: 048
  4. DURAGESIC [Suspect]
     Active Substance: FENTANYL
     Indication: CHEST PAIN
     Route: 062
     Dates: start: 2008, end: 2009
  5. DURAGESIC [Suspect]
     Active Substance: FENTANYL
     Indication: PAIN
     Route: 062
     Dates: start: 200910
  6. CARVEDILOL. [Concomitant]
     Active Substance: CARVEDILOL
     Route: 048
  7. ASPIRIN. [Concomitant]
     Active Substance: ASPIRIN
     Route: 048
  8. LISINOPRIL. [Concomitant]
     Active Substance: LISINOPRIL
     Route: 048
  9. SPIRONOLACTONE. [Concomitant]
     Active Substance: SPIRONOLACTONE
     Route: 048

REACTIONS (3)
  - Drug effect decreased [Not Recovered/Not Resolved]
  - Product quality issue [Recovered/Resolved]
  - Weight fluctuation [Not Recovered/Not Resolved]

NARRATIVE: CASE EVENT DATE: 2009
